FAERS Safety Report 23482643 (Version 1)
Quarter: 2024Q1

REPORT INFORMATION
  Report Type: Spontaneous
  Country: US (occurrence: None)
  Receive Date: 20240204
  Receipt Date: 20240204
  Transmission Date: 20240410
  Serious: Yes (Other)
  Sender: FDA-Public Use
  Company Number: None

PATIENT
  Age: 45 Year
  Sex: Female
  Weight: 78.75 kg

DRUGS (4)
  1. EMGALITY [Suspect]
     Active Substance: GALCANEZUMAB-GNLM
     Indication: Migraine
     Dosage: OTHER QUANTITY : 2 INJECTION(S);?OTHER FREQUENCY : MONTHLY;?
     Route: 030
     Dates: start: 20231219, end: 20240201
  2. NURTEC ODT [Concomitant]
     Active Substance: RIMEGEPANT SULFATE
  3. NAPROXEN [Concomitant]
     Active Substance: NAPROXEN
  4. Errin .35 mg daily [Concomitant]

REACTIONS (6)
  - Back pain [None]
  - Muscle spasms [None]
  - Musculoskeletal stiffness [None]
  - Constipation [None]
  - Alopecia [None]
  - Palpitations [None]

NARRATIVE: CASE EVENT DATE: 20240112
